FAERS Safety Report 19932511 (Version 1)
Quarter: 2021Q4

REPORT INFORMATION
  Report Type: Spontaneous
  Country: US (occurrence: US)
  Receive Date: 20211007
  Receipt Date: 20211007
  Transmission Date: 20220303
  Serious: Yes (Other)
  Sender: FDA-Public Use
  Company Number: None

PATIENT
  Age: 60 Year
  Sex: Female
  Weight: 67 kg

DRUGS (9)
  1. PRIVIGEN [Suspect]
     Active Substance: HUMAN IMMUNOGLOBULIN G
     Indication: Myopathy
     Dosage: ?          OTHER FREQUENCY:X 2 DAYS Q 3 WEEKS;
     Route: 041
  2. diphenhydramine 25 mg po [Concomitant]
  3. acetaminophen 650 mg po [Concomitant]
  4. ondansetron 4 mg IV [Concomitant]
  5. buspirone 10 mg po [Concomitant]
  6. pristique 50 mg po [Concomitant]
  7. lamictal 150 mg po [Concomitant]
  8. lorazepam 0.5 mg po [Concomitant]
  9. INCRUSE ELLIPTA [Concomitant]
     Active Substance: UMECLIDINIUM BROMIDE

REACTIONS (3)
  - Pruritus [None]
  - Erythema [None]
  - Erythema [None]

NARRATIVE: CASE EVENT DATE: 20210926
